FAERS Safety Report 5343635-4 (Version None)
Quarter: 2007Q2

REPORT INFORMATION
  Report Type: 
  Country: None (occurrence: None)
  Receive Date: 20070604
  Receipt Date: 20070524
  Transmission Date: 20071010
  Serious: Yes (Life-Threatening, Hospitalization, Other)
  Sender: FDA-Public Use
  Company Number: BE-BAYER-200712749GDS

PATIENT
  Age: 47 Year
  Sex: Male

DRUGS (4)
  1. LEVITRA [Suspect]
     Indication: ERECTILE DYSFUNCTION
     Route: 048
  2. ANTIPHLOGISTICS [Concomitant]
     Indication: BACK PAIN
  3. CIALIS [Concomitant]
     Indication: SEXUAL ACTIVITY INCREASED
  4. VIAGRA [Concomitant]
     Indication: SEXUAL ACTIVITY INCREASED

REACTIONS (4)
  - CEREBRAL INFARCTION [None]
  - HEADACHE [None]
  - THROMBOSIS [None]
  - TRANSIENT ISCHAEMIC ATTACK [None]
